FAERS Safety Report 9154674 (Version 2)
Quarter: 2013Q2

REPORT INFORMATION
  Report Type: Spontaneous
  Country: US (occurrence: None)
  Receive Date: 20130207
  Receipt Date: 20130424
  Transmission Date: 20140414
  Serious: Yes (Other)
  Sender: FDA-Public Use
  Company Number: CRC-13-065

PATIENT
  Age: 18 Year
  Sex: Female
  Weight: 54.43 kg

DRUGS (3)
  1. CITALOPRAM [Suspect]
     Indication: ANXIETY DISORDER
     Dosage: ONE TABLET DAILY; ORAL., FOR TWO WEEKS IN 01/2013
     Route: 048
     Dates: start: 201301
  2. FLOVENT [Concomitant]
  3. ALBUTEROL INHALER [Concomitant]

REACTIONS (3)
  - Self-injurious ideation [None]
  - Suicidal ideation [None]
  - Product substitution issue [None]
